FAERS Safety Report 4683234-0 (Version None)
Quarter: 2005Q2

REPORT INFORMATION
  Report Type: 
  Country: None (occurrence: None)
  Receive Date: 20050602
  Receipt Date: 20050203
  Transmission Date: 20051028
  Serious: No
  Sender: FDA-Public Use
  Company Number: USA050289956

PATIENT
  Age: 51 Year
  Sex: Female
  Weight: 62 kg

DRUGS (2)
  1. CYMBALTA [Suspect]
     Indication: ANTIDEPRESSANT THERAPY
     Dosage: 60 MG
  2. VICODIN [Concomitant]

REACTIONS (4)
  - EXCITABILITY [None]
  - FEELING JITTERY [None]
  - INSOMNIA [None]
  - RESTLESSNESS [None]
